FAERS Safety Report 12481934 (Version 2)
Quarter: 2016Q3

REPORT INFORMATION
  Report Type: Report from Study
  Country: US (occurrence: US)
  Receive Date: 20160620
  Receipt Date: 20160803
  Transmission Date: 20161109
  Serious: Yes (Hospitalization, Other)
  Sender: FDA-Public Use
  Company Number: US-AMGEN-USASL2016076197

PATIENT
  Age: 82 Year
  Sex: Female
  Weight: 43.72 kg

DRUGS (11)
  1. VITAMIN D3 [Concomitant]
     Active Substance: CHOLECALCIFEROL
     Dosage: 50000 UNIT, QMO
     Route: 048
  2. PROLIA [Suspect]
     Active Substance: DENOSUMAB
     Indication: OSTEOPOROSIS POSTMENOPAUSAL
     Dosage: 60 MG, Q6MO
     Route: 058
     Dates: start: 201412
  3. CALCIUM [Concomitant]
     Active Substance: CALCIUM
  4. VITAMIN D [Concomitant]
     Active Substance: CHOLECALCIFEROL
     Dosage: 50000 UNIT, QMO
  5. EYLEA [Concomitant]
     Active Substance: AFLIBERCEPT
     Dosage: UNK UNK, QMO
  6. BIOTIN [Concomitant]
     Active Substance: BIOTIN
  7. AVASTIN [Concomitant]
     Active Substance: BEVACIZUMAB
     Dosage: UNK UNK, QMO
  8. MULTIVITAMIN [Concomitant]
     Active Substance: VITAMINS
     Dosage: UNK
  9. PRESERVISION [Concomitant]
     Active Substance: MINERALS\VITAMINS
  10. KEFLEX [Concomitant]
     Active Substance: CEPHALEXIN
  11. LEVOTHYROXINE SODIUM. [Concomitant]
     Active Substance: LEVOTHYROXINE SODIUM
     Dosage: 75 MUG, QD
     Route: 048

REACTIONS (11)
  - Osteonecrosis of jaw [Unknown]
  - Fall [Unknown]
  - Laceration [Unknown]
  - Periodontitis [Unknown]
  - Tooth abscess [Unknown]
  - Limb operation [Unknown]
  - Osteomyelitis [Unknown]
  - Tooth fracture [Unknown]
  - Device physical property issue [Unknown]
  - Syncope [Unknown]
  - Head injury [Unknown]

NARRATIVE: CASE EVENT DATE: 2014
